FAERS Safety Report 7611090-7 (Version None)
Quarter: 2011Q3

REPORT INFORMATION
  Report Type: 
  Country: None (occurrence: None)
  Receive Date: 20110715
  Receipt Date: 20110708
  Transmission Date: 20111222
  Serious: Yes (Hospitalization)
  Sender: FDA-Public Use
  Company Number: JP-EISAI INC-E2090-01685-SPO-JP

PATIENT
  Sex: Male

DRUGS (12)
  1. SIGMART [Concomitant]
  2. ZONISAMIDE [Suspect]
     Indication: EPILEPSY
     Dosage: 200 MG DAILY
     Route: 048
     Dates: start: 20110630, end: 20110707
  3. THEOLONG [Concomitant]
  4. ASPIRIN [Concomitant]
  5. KREMEZIN [Concomitant]
  6. LANSOPRAZOLE [Suspect]
     Dosage: UNKNOWN
     Route: 048
  7. LOPRESSOR [Concomitant]
  8. MAGNESIUM SULFATE [Concomitant]
  9. CONIEL [Suspect]
     Dosage: UNKNOWN
     Route: 048
  10. LASIX [Suspect]
     Dosage: UNKNOWN
     Route: 048
  11. BISOLVON [Concomitant]
  12. ISOSORBIDE DINITRATE [Concomitant]

REACTIONS (1)
  - AGRANULOCYTOSIS [None]
